FAERS Safety Report 23049508 (Version 7)
Quarter: 2024Q2

REPORT INFORMATION
  Report Type: Report from Study
  Country: US (occurrence: US)
  Receive Date: 20231010
  Receipt Date: 20240508
  Transmission Date: 20240716
  Serious: Yes (Hospitalization, Other)
  Sender: FDA-Public Use
  Company Number: US-SANDOZ-SDZ2023US026933

PATIENT
  Sex: Male
  Weight: 108.39 kg

DRUGS (5)
  1. TREPROSTINIL [Suspect]
     Active Substance: TREPROSTINIL
     Dosage: 63 NG PER KG PER MIN, CONT, 5MG/ML
     Route: 042
     Dates: start: 20230824
  2. TREPROSTINIL [Suspect]
     Active Substance: TREPROSTINIL
     Dosage: UNK, CONT ( 80 NG PER KG PER MIN)
     Route: 042
     Dates: start: 20230824
  3. TREPROSTINIL [Suspect]
     Active Substance: TREPROSTINIL
     Indication: Pulmonary arterial hypertension
     Dosage: 27NG PER KG PER MIN, CONT
     Route: 058
     Dates: start: 20230824
  4. TREPROSTINIL [Suspect]
     Active Substance: TREPROSTINIL
     Dosage: UNK
     Route: 065
  5. SILDENAFIL CITRATE [Concomitant]
     Active Substance: SILDENAFIL CITRATE
     Indication: Product used for unknown indication
     Dosage: UNK
     Route: 065

REACTIONS (9)
  - Blood glucose decreased [Unknown]
  - Lung disorder [Unknown]
  - Right ventricular failure [Unknown]
  - Blood sodium decreased [Unknown]
  - Ascites [Unknown]
  - Urticaria [Unknown]
  - Weight increased [Unknown]
  - Oedema [Unknown]
  - Fluid retention [Unknown]
